FAERS Safety Report 4830962-X (Version None)
Quarter: 2005Q4

REPORT INFORMATION
  Report Type: 
  Country: None (occurrence: None)
  Receive Date: 20051114
  Receipt Date: 20051028
  Transmission Date: 20060501
  Serious: Yes (Death, Other)
  Sender: FDA-Public Use
  Company Number: 2005-02237

PATIENT
  Age: 53 Year
  Sex: Female
  Weight: 53 kg

DRUGS (2)
  1. VELCADE [Suspect]
     Dosage: 1.70 MG/M2, INTRAVENOUS
     Route: 042
     Dates: start: 20050419
  2. DEXAMETHASONE [Concomitant]

REACTIONS (4)
  - INTERLEUKIN LEVEL INCREASED [None]
  - PULMONARY OEDEMA [None]
  - THERAPY NON-RESPONDER [None]
  - TUMOUR LYSIS SYNDROME [None]
